FAERS Safety Report 7445008-7 (Version None)
Quarter: 2011Q2

REPORT INFORMATION
  Report Type: 
  Country: None (occurrence: None)
  Receive Date: 20110429
  Receipt Date: 20110420
  Transmission Date: 20111010
  Serious: Yes (Other)
  Sender: FDA-Public Use
  Company Number: FR-SANOFI-AVENTIS-2011SA002726

PATIENT
  Age: 68 Year
  Sex: Female
  Weight: 94 kg

DRUGS (5)
  1. MULTAQ [Suspect]
     Indication: ATRIAL FIBRILLATION
     Route: 048
     Dates: end: 20110101
  2. ESOMEPRAZOLE [Concomitant]
     Route: 065
  3. LASIX [Concomitant]
     Route: 065
  4. CARDENSIEL [Concomitant]
     Route: 048
  5. PERINDOPRIL [Concomitant]
     Route: 048

REACTIONS (2)
  - MACULAR DEGENERATION [None]
  - VISUAL IMPAIRMENT [None]
